FAERS Safety Report 8604717-4 (Version None)
Quarter: 2012Q3

REPORT INFORMATION
  Report Type: 
  Country: None (occurrence: None)
  Receive Date: 20120820
  Receipt Date: 20120816
  Transmission Date: 20120928
  Serious: Yes (Death, Hospitalization, Disabling, Other)
  Sender: FDA-Public Use
  Company Number: PHEH2007US12546

PATIENT
  Sex: Female

DRUGS (28)
  1. ACETAMINOPHEN [Concomitant]
  2. NYSTATIN [Concomitant]
  3. HYDROCODONE [Concomitant]
     Dosage: 5 MG, Q6H
     Route: 048
  4. DECADRON PHOSPHATE [Concomitant]
  5. XANAX [Concomitant]
     Dosage: 0.5 MG, PRN
  6. REVLIMID [Concomitant]
     Dosage: 1 DF, QD
  7. TEMAZEPAM [Concomitant]
  8. ALKERAN [Concomitant]
  9. AREDIA [Suspect]
     Dosage: 90 MG, UNK
     Route: 042
  10. LEXAPRO [Concomitant]
  11. IBUPROFEN [Concomitant]
  12. AMBIEN [Concomitant]
     Dosage: 5 MG, QHS PRN
  13. PREDNISONE TAB [Concomitant]
  14. TRILISATE [Concomitant]
  15. SENOKOT                                 /UNK/ [Concomitant]
     Route: 048
  16. VICODIN [Concomitant]
  17. LYRICA [Concomitant]
     Dosage: 75 MG, BID
     Route: 048
  18. LIDODERM [Concomitant]
  19. THALIDOMIDE [Concomitant]
  20. ZOMETA [Suspect]
     Dosage: 4 MG, QW4
     Route: 042
     Dates: start: 20040201, end: 20060101
  21. ASPIRIN [Concomitant]
  22. LOVENOX [Concomitant]
     Dosage: 40 MG, UNK
     Route: 058
  23. ZITHROMAX [Concomitant]
     Dosage: 500 MG, QD
     Route: 048
  24. LEVAQUIN [Concomitant]
     Dosage: 500 MG, QD
     Route: 048
  25. COLACE [Concomitant]
  26. ZITHROMAX [Concomitant]
     Dosage: 250 MG, QD
     Route: 048
  27. ZOLPIDEM [Concomitant]
     Dosage: 5 MG, QHS
     Route: 048
  28. OXYCONTIN [Concomitant]

REACTIONS (82)
  - PNEUMONIA [None]
  - OPEN WOUND [None]
  - CONFUSIONAL STATE [None]
  - SPINAL OSTEOARTHRITIS [None]
  - OSTEOPENIA [None]
  - COMPRESSION FRACTURE [None]
  - ALOPECIA [None]
  - METASTASES TO BONE [None]
  - DEAFNESS [None]
  - DRY SKIN [None]
  - DRY MOUTH [None]
  - CHRONIC OBSTRUCTIVE PULMONARY DISEASE [None]
  - VISION BLURRED [None]
  - BRONCHITIS [None]
  - NAUSEA [None]
  - OSTEONECROSIS OF JAW [None]
  - PAIN [None]
  - CONSTIPATION [None]
  - INSOMNIA [None]
  - SPINAL COLUMN STENOSIS [None]
  - ANAEMIA [None]
  - ISCHAEMIA [None]
  - PELVIC HAEMATOMA [None]
  - WEIGHT INCREASED [None]
  - HYPOKALAEMIA [None]
  - PARAPROTEINAEMIA [None]
  - DEPRESSION [None]
  - PAIN IN JAW [None]
  - DECREASED APPETITE [None]
  - BACK PAIN [None]
  - COUGH [None]
  - PYREXIA [None]
  - PRURITUS GENERALISED [None]
  - FALL [None]
  - DYSPNOEA [None]
  - FATIGUE [None]
  - PANCYTOPENIA [None]
  - CARDIOMEGALY [None]
  - EMPHYSEMA [None]
  - IMMUNE SYSTEM DISORDER [None]
  - EMOTIONAL DISTRESS [None]
  - NASAL CONGESTION [None]
  - RASH [None]
  - NEUROPATHY PERIPHERAL [None]
  - HERPES ZOSTER [None]
  - OSTEOPOROSIS [None]
  - BONE NEOPLASM MALIGNANT [None]
  - RIB FRACTURE [None]
  - DECUBITUS ULCER [None]
  - OSTEOARTHRITIS [None]
  - DEFORMITY [None]
  - ANXIETY [None]
  - MASTOIDITIS [None]
  - OEDEMA PERIPHERAL [None]
  - ERYTHEMA [None]
  - HYPOAESTHESIA [None]
  - GAIT DISTURBANCE [None]
  - PULMONARY EMBOLISM [None]
  - PLEURAL FIBROSIS [None]
  - INTERVERTEBRAL DISC PROTRUSION [None]
  - CATARACT [None]
  - SUBDURAL HAEMATOMA [None]
  - EDENTULOUS [None]
  - BONE LOSS [None]
  - SWELLING FACE [None]
  - SCIATICA [None]
  - SCOLIOSIS [None]
  - MALAISE [None]
  - GASTROENTERITIS [None]
  - GOITRE [None]
  - MULTIPLE MYELOMA [None]
  - INFECTION [None]
  - HEADACHE [None]
  - CHEST PAIN [None]
  - LUNG NEOPLASM [None]
  - PLASMACYTOSIS [None]
  - PELVIC FRACTURE [None]
  - ATELECTASIS [None]
  - DEHYDRATION [None]
  - RADIUS FRACTURE [None]
  - NEURALGIA [None]
  - HAEMORRHAGE INTRACRANIAL [None]
